FAERS Safety Report 6268782-4 (Version None)
Quarter: 2009Q3

REPORT INFORMATION
  Report Type: 
  Country: None (occurrence: None)
  Receive Date: 20090710
  Receipt Date: 20090710
  Transmission Date: 20100115
  Serious: Yes (Other)
  Sender: FDA-Public Use
  Company Number: None

PATIENT
  Sex: Male
  Weight: 114.1 kg

DRUGS (1)
  1. CISPLATIN [Suspect]

REACTIONS (2)
  - BLOOD CREATININE INCREASED [None]
  - DRUG TOXICITY [None]
